FAERS Safety Report 8152170-X (Version None)
Quarter: 2012Q1

REPORT INFORMATION
  Report Type: 
  Country: None (occurrence: None)
  Receive Date: 20120103
  Receipt Date: 20111110
  Transmission Date: 20120608
  Serious: No
  Sender: FDA-Public Use
  Company Number: AE-2011-003334

PATIENT
  Age: 51 Year
  Sex: Male
  Weight: 85.2762 kg

DRUGS (7)
  1. PEGASYS (PEGINTERFERON ALFA-2A) [Concomitant]
  2. ZOLOFT [Concomitant]
  3. VITAMIN D [Concomitant]
  4. PRILOSEC [Concomitant]
  5. INCIVEK [Suspect]
     Dosage: 2250 MG (750 MG, 1 IN 8 HR), ORAL
     Route: 048
     Dates: start: 20111029
  6. COPEGUS [Concomitant]
  7. VITAMIN E [Concomitant]

REACTIONS (1)
  - RASH PRURITIC [None]
